FAERS Safety Report 11004544 (Version 2)
Quarter: 2015Q3

REPORT INFORMATION
  Report Type: Spontaneous
  Country: US (occurrence: US)
  Receive Date: 20150409
  Receipt Date: 20150911
  Transmission Date: 20151125
  Serious: Yes (Death, Hospitalization, Other)
  Sender: FDA-Public Use
  Company Number: US-009507513-1504USA004294

PATIENT
  Sex: Male
  Weight: 86.17 kg

DRUGS (2)
  1. JANUVIA [Suspect]
     Active Substance: SITAGLIPTIN PHOSPHATE
     Dosage: 50 MG, QD
     Route: 048
     Dates: start: 20101115, end: 20130131
  2. JANUVIA [Suspect]
     Active Substance: SITAGLIPTIN PHOSPHATE
     Indication: TYPE 2 DIABETES MELLITUS
     Dosage: 100 MG, QD
     Route: 048
     Dates: start: 20090121, end: 20110214

REACTIONS (27)
  - Pancreatic carcinoma [Fatal]
  - Cardiac pacemaker insertion [Unknown]
  - Cerebral venous thrombosis [Unknown]
  - Diverticulum intestinal [Unknown]
  - Neoplasm prostate [Unknown]
  - Meningioma [Unknown]
  - Bile duct stent insertion [Unknown]
  - Gastric fistula [Unknown]
  - Chills [Unknown]
  - Appendicectomy [Unknown]
  - Coronary artery bypass [Unknown]
  - Metastases to peritoneum [Unknown]
  - Multi-organ failure [Fatal]
  - Confusional state [Unknown]
  - Impaired gastric emptying [Unknown]
  - Muscle spasms [Unknown]
  - Hypertension [Unknown]
  - Autoimmune thyroiditis [Unknown]
  - Catheterisation cardiac [Unknown]
  - Electrolyte imbalance [Unknown]
  - Arteriosclerosis coronary artery [Unknown]
  - Pancreaticoduodenectomy [Unknown]
  - Cardiac failure [Unknown]
  - Hyperlipidaemia [Unknown]
  - Hepatic failure [Unknown]
  - Venous repair [Unknown]
  - Mental status changes [Unknown]

NARRATIVE: CASE EVENT DATE: 201101
